FAERS Safety Report 4999806-X (Version None)
Quarter: 2006Q2

REPORT INFORMATION
  Report Type: 
  Country: None (occurrence: None)
  Receive Date: 20060509
  Receipt Date: 20060424
  Transmission Date: 20061013
  Serious: Yes (Other)
  Sender: FDA-Public Use
  Company Number: 2006BH008717

PATIENT
  Sex: Female

DRUGS (1)
  1. FUROSEMIDE [Suspect]

REACTIONS (11)
  - ABDOMINAL DISTENSION [None]
  - HYDRONEPHROSIS [None]
  - JAUNDICE [None]
  - NEONATAL DISORDER [None]
  - NEPHROCALCINOSIS [None]
  - NEPHROLITHIASIS [None]
  - OBSTRUCTIVE UROPATHY [None]
  - PERINEPHRIC COLLECTION [None]
  - RENAL FAILURE [None]
  - URINE CALCIUM/CREATININE RATIO INCREASED [None]
  - URINOMA [None]
